FAERS Safety Report 12202140 (Version 1)
Quarter: 2016Q1

REPORT INFORMATION
  Report Type: Spontaneous
  Country: IT (occurrence: IT)
  Receive Date: 20160322
  Receipt Date: 20160322
  Transmission Date: 20160526
  Serious: Yes (Hospitalization)
  Sender: FDA-Public Use
  Company Number: PHHY2016IT035055

PATIENT
  Age: 63 Year
  Sex: Male

DRUGS (2)
  1. ACETYLSALICYLIC ACID [Suspect]
     Active Substance: ASPIRIN
     Indication: ANEURYSM
     Route: 048
  2. COUMADINE [Suspect]
     Active Substance: WARFARIN SODIUM
     Indication: ANEURYSM
     Route: 048

REACTIONS (5)
  - Muscle rigidity [Recovering/Resolving]
  - Vomiting [Recovering/Resolving]
  - Headache [Recovering/Resolving]
  - Tinnitus [Recovering/Resolving]
  - Hyperpyrexia [Recovering/Resolving]

NARRATIVE: CASE EVENT DATE: 20160111
